FAERS Safety Report 9705344 (Version 1)
Quarter: 2013Q4

REPORT INFORMATION
  Report Type: Spontaneous
  Country: FR (occurrence: FR)
  Receive Date: 20131122
  Receipt Date: 20131122
  Transmission Date: 20140711
  Serious: Yes (Hospitalization)
  Sender: FDA-Public Use
  Company Number: FR-SA-2013SA117486

PATIENT
  Age: 82 Year
  Sex: Female

DRUGS (3)
  1. RIFADINE [Suspect]
     Indication: INFECTION
     Route: 048
     Dates: start: 20131006, end: 20131017
  2. TRIFLUCAN [Suspect]
     Indication: ORAL CANDIDIASIS
     Route: 048
     Dates: start: 20131007, end: 20131017
  3. VANCOMYCINE [Concomitant]
     Indication: INFECTION
     Dates: start: 20131006

REACTIONS (3)
  - Liver disorder [Recovered/Resolved]
  - Bilirubin conjugated increased [Recovered/Resolved]
  - Jaundice [Recovered/Resolved]
